FAERS Safety Report 8120618-2 (Version None)
Quarter: 2012Q1

REPORT INFORMATION
  Report Type: 
  Country: None (occurrence: None)
  Receive Date: 20120207
  Receipt Date: 20120105
  Transmission Date: 20120608
  Serious: Yes (Disabling, Other)
  Sender: FDA-Public Use
  Company Number: DK-BAYER-200923701GPV

PATIENT
  Age: 63 Year
  Sex: Male
  Weight: 90 kg

DRUGS (8)
  1. HJERDYL [Concomitant]
  2. PANTOPRAZOLE SODIUM [Concomitant]
     Dosage: AS USED DOSE: UNK
     Route: 065
  3. GADAVIST [Suspect]
     Indication: ANGIOGRAM
     Route: 042
     Dates: start: 20080619, end: 20080619
  4. PANTOPRAZOLE SODIUM [Concomitant]
  5. HJERDYL [Concomitant]
     Dosage: AS USED DOSE: UNK
     Route: 048
  6. RAMIPRIL [Concomitant]
     Dosage: AS USED DOSE: UNK
     Route: 065
  7. HJERDYL [Concomitant]
  8. HJERDYL [Concomitant]

REACTIONS (12)
  - NEPHROGENIC SYSTEMIC FIBROSIS [None]
  - MYALGIA [None]
  - OEDEMA PERIPHERAL [None]
  - ARTHRALGIA [None]
  - ECZEMA [None]
  - PARAESTHESIA [None]
  - GAIT DISTURBANCE [None]
  - PRURITUS [None]
  - JOINT STIFFNESS [None]
  - MUSCULOSKELETAL STIFFNESS [None]
  - SKIN HYPERTROPHY [None]
  - PAIN IN EXTREMITY [None]
